FAERS Safety Report 7639699-5 (Version None)
Quarter: 2011Q3

REPORT INFORMATION
  Report Type: 
  Country: None (occurrence: None)
  Receive Date: 20110727
  Receipt Date: 20110725
  Transmission Date: 20111222
  Serious: Yes (Other)
  Sender: FDA-Public Use
  Company Number: CL-PFIZER INC-2011169713

PATIENT
  Age: 30 Year
  Sex: Female

DRUGS (1)
  1. SERTRALINE HYDROCHLORIDE [Suspect]
     Indication: ANXIETY DISORDER
     Dosage: 50 MG, 1X/DAY
     Route: 048
     Dates: start: 20110720, end: 20110722

REACTIONS (6)
  - BURNING SENSATION [None]
  - FACIAL PAIN [None]
  - URTICARIA [None]
  - HYPERHIDROSIS [None]
  - ERYTHEMA [None]
  - PAIN [None]
